FAERS Safety Report 25423372 (Version 1)
Quarter: 2025Q2

REPORT INFORMATION
  Report Type: Spontaneous
  Country: US (occurrence: None)
  Receive Date: 20250610
  Receipt Date: 20250610
  Transmission Date: 20250716
  Serious: Yes (Disabling)
  Sender: FDA-CTU
  Company Number: None

PATIENT
  Age: 27 Year
  Sex: Female

DRUGS (3)
  1. ZOLOFT [Suspect]
     Active Substance: SERTRALINE HYDROCHLORIDE
  2. ATARAX [Suspect]
     Active Substance: HYDROXYZINE HYDROCHLORIDE
  3. VENLAFAXINE HYDROCHLORIDE [Suspect]
     Active Substance: VENLAFAXINE HYDROCHLORIDE

REACTIONS (12)
  - Panic attack [None]
  - Headache [None]
  - Tremor [None]
  - Anxiety [None]
  - Vision blurred [None]
  - Depression [None]
  - Therapy change [None]
  - Withdrawal syndrome [None]
  - Derealisation [None]
  - Paraesthesia [None]
  - Head discomfort [None]
  - Brain fog [None]
